FAERS Safety Report 4659577-3 (Version None)
Quarter: 2005Q2

REPORT INFORMATION
  Report Type: 
  Country: None (occurrence: None)
  Receive Date: 20050412
  Receipt Date: 20050215
  Transmission Date: 20051028
  Serious: Yes (Hospitalization)
  Sender: FDA-Public Use
  Company Number: 2005S1000022

PATIENT
  Age: 81 Year
  Sex: Male
  Weight: 67 kg

DRUGS (8)
  1. CUBICIN [Suspect]
     Indication: ENTEROCOCCAL INFECTION
     Dosage: 250 MG; QD; IV
     Route: 042
     Dates: start: 20050117, end: 20050211
  2. CUBICIN [Suspect]
     Indication: STAPHYLOCOCCAL SEPSIS
     Dosage: 250 MG; QD; IV
     Route: 042
     Dates: start: 20050117, end: 20050211
  3. COUMADIN [Concomitant]
  4. FLOMAX [Concomitant]
  5. TOPROL-XL [Concomitant]
  6. PREVACID [Concomitant]
  7. HEPARIN [Concomitant]
  8. VANCOMYCIN [Concomitant]

REACTIONS (1)
  - THROMBOCYTOPENIA [None]
